FAERS Safety Report 7783325-1 (Version None)
Quarter: 2011Q3

REPORT INFORMATION
  Report Type: 
  Country: None (occurrence: None)
  Receive Date: 20110928
  Receipt Date: 20110914
  Transmission Date: 20111222
  Serious: Yes (Other)
  Sender: FDA-Public Use
  Company Number: US-BAYER-2011-021257

PATIENT
  Age: 33 Year
  Sex: Female
  Weight: 113.38 kg

DRUGS (7)
  1. CIPROFLOXACIN [Concomitant]
     Indication: URINARY TRACT INFECTION
     Dosage: UNK
     Dates: start: 20090401
  2. SYMBYAX [Concomitant]
     Indication: ANXIETY
  3. LEVOTHYROXINE SODIUM [Concomitant]
     Dosage: UNK
     Dates: start: 20050901
  4. SYMBYAX [Concomitant]
     Indication: DEPRESSION
     Dosage: UNK
     Dates: start: 20060501, end: 20090501
  5. YASMIN [Suspect]
     Indication: CONTRACEPTION
     Dosage: UNK
     Dates: start: 20070601, end: 20080701
  6. IBUPROFEN [Concomitant]
  7. DROSPIRENONE AND ETHINYL ESTRADIOL [Suspect]
     Indication: CONTRACEPTION
     Dosage: UNK
     Dates: start: 20080701, end: 20090701

REACTIONS (2)
  - PAIN [None]
  - DEEP VEIN THROMBOSIS [None]
